FAERS Safety Report 7027267-8 (Version None)
Quarter: 2010Q3

REPORT INFORMATION
  Report Type: 
  Country: None (occurrence: None)
  Receive Date: 20100930
  Receipt Date: 20100917
  Transmission Date: 20110219
  Serious: Yes (Hospitalization, Other)
  Sender: FDA-Public Use
  Company Number: GB-1183418

PATIENT
  Sex: Male

DRUGS (5)
  1. TROPICAMIDE [Suspect]
     Indication: OPHTHALMOLOGICAL EXAMINATION
     Dosage: OPHTHALMIC
     Route: 047
     Dates: start: 20100624, end: 20100624
  2. ASPIRIN [Concomitant]
  3. NOVOMIX (INSULIN ASPART) [Concomitant]
  4. PERINDOPRIL ERBUMINE [Concomitant]
  5. SIMVASTATIN [Concomitant]

REACTIONS (4)
  - APHASIA [None]
  - MUSCULAR WEAKNESS [None]
  - SYNCOPE [None]
  - VIITH NERVE PARALYSIS [None]
